FAERS Safety Report 10661216 (Version 1)
Quarter: 2014Q4

REPORT INFORMATION
  Report Type: Spontaneous
  Country: US (occurrence: None)
  Receive Date: 20141216
  Receipt Date: 20141216
  Transmission Date: 20150529
  Serious: Yes (Disabling, Other)
  Sender: FDA-Public Use
  Company Number: None

PATIENT
  Age: 48 Year
  Sex: Female

DRUGS (1)
  1. LEVAQUIN [Suspect]
     Active Substance: LEVOFLOXACIN
     Indication: SINUSITIS
     Dosage: 1 PILL A DAY
     Route: 048

REACTIONS (10)
  - Insomnia [None]
  - Neck pain [None]
  - Pruritus [None]
  - Pain [None]
  - Muscle spasms [None]
  - Burning sensation [None]
  - Hypoaesthesia [None]
  - Paraesthesia [None]
  - Impaired work ability [None]
  - Back pain [None]

NARRATIVE: CASE EVENT DATE: 20141001
